FAERS Safety Report 8419562-2 (Version None)
Quarter: 2012Q2

REPORT INFORMATION
  Report Type: 
  Country: None (occurrence: None)
  Receive Date: 20120607
  Receipt Date: 20120530
  Transmission Date: 20120825
  Serious: Yes (Hospitalization)
  Sender: FDA-Public Use
  Company Number: US-ROCHE-1049480

PATIENT
  Sex: Female
  Weight: 75.818 kg

DRUGS (1)
  1. ZELBORAF [Suspect]
     Indication: MALIGNANT MELANOMA
     Route: 048
     Dates: start: 20120201

REACTIONS (17)
  - CARDIAC FAILURE CONGESTIVE [None]
  - CHILLS [None]
  - PRURITUS [None]
  - BREAST PAIN [None]
  - RASH [None]
  - OROPHARYNGEAL PAIN [None]
  - EYE PRURITUS [None]
  - DIARRHOEA [None]
  - JOINT SWELLING [None]
  - NIPPLE SWELLING [None]
  - ARTHRALGIA [None]
  - FATIGUE [None]
  - HEADACHE [None]
  - NAUSEA [None]
  - SUNBURN [None]
  - BREAST SWELLING [None]
  - BLISTER [None]
